FAERS Safety Report 4560822-3 (Version None)
Quarter: 2005Q1

REPORT INFORMATION
  Report Type: 
  Country: None (occurrence: None)
  Receive Date: 20050121
  Receipt Date: 20041230
  Transmission Date: 20050727
  Serious: Yes (Hospitalization)
  Sender: FDA-Public Use
  Company Number: 105803ISR

PATIENT
  Age: 39 Year
  Sex: Male

DRUGS (6)
  1. VINCRISTINE [Suspect]
     Indication: HODGKIN'S DISEASE
     Dosage: 2 MILLIGRAM
     Route: 042
     Dates: start: 20030121, end: 20030624
  2. DOXORUBICIN HCL [Suspect]
     Indication: HODGKIN'S DISEASE
     Route: 042
     Dates: start: 20030114, end: 20030617
  3. BLEOMYCIN [Suspect]
     Indication: HODGKIN'S DISEASE
     Dosage: 17 MILLIGRAM
     Route: 042
     Dates: start: 20040121, end: 20030624
  4. CYCLOPHOSPHAMIDE [Suspect]
     Indication: HODGKIN'S DISEASE
     Route: 042
     Dates: start: 20030114, end: 20030617
  5. PROCARBAZINE HYDROCHLORIDE [Suspect]
     Indication: HODGKIN'S DISEASE
     Dosage: 150 MILLIGRAM
     Route: 048
     Dates: start: 20030115, end: 20030624
  6. ETOPOSIDE [Suspect]
     Indication: HODGKIN'S DISEASE
     Route: 042
     Dates: start: 20030114, end: 20030619

REACTIONS (4)
  - ACUTE MYELOID LEUKAEMIA [None]
  - ARTHRALGIA [None]
  - BONE MARROW TRANSPLANT [None]
  - HYPERURICAEMIA [None]
